FAERS Safety Report 11469219 (Version 1)
Quarter: 2015Q3

REPORT INFORMATION
  Report Type: Spontaneous
  Country: US (occurrence: US)
  Receive Date: 20150908
  Receipt Date: 20150908
  Transmission Date: 20151125
  Serious: Yes (Other)
  Sender: FDA-Public Use
  Company Number: US-TAKEDA-2015TUS001614

PATIENT

DRUGS (7)
  1. ACTOS [Suspect]
     Active Substance: PIOGLITAZONE HYDROCHLORIDE
     Indication: TYPE 2 DIABETES MELLITUS
     Dosage: DOSE: 15MG, 30MG
     Route: 048
     Dates: start: 200508, end: 200801
  2. NOVOLOG [Concomitant]
     Active Substance: INSULIN ASPART
     Indication: DIABETES MELLITUS
     Dosage: 20U MORNING AND NIGHT
     Dates: start: 2010, end: 2013
  3. LANTUS [Concomitant]
     Active Substance: INSULIN GLARGINE
     Dosage: 20U MORNING AND NIGHT
     Dates: start: 2010
  4. BYETTA [Concomitant]
     Active Substance: EXENATIDE
     Dosage: 10 MCG, UNK
     Dates: start: 2008, end: 2009
  5. HUMALOG [Concomitant]
     Active Substance: INSULIN LISPRO
     Dosage: 20U MORNING AND NIGHT
     Dates: start: 2014
  6. AMARYL [Concomitant]
     Active Substance: GLIMEPIRIDE
     Dosage: 4 MG, UNK
     Dates: start: 2009
  7. METFORMIN [Concomitant]
     Active Substance: METFORMIN HYDROCHLORIDE
     Dosage: 1000 MG, UNK
     Dates: start: 2009

REACTIONS (1)
  - Bladder cancer [Unknown]

NARRATIVE: CASE EVENT DATE: 20140424
